FAERS Safety Report 8951738 (Version 2)
Quarter: 2013Q1

REPORT INFORMATION
  Report Type: Spontaneous
  Country: US (occurrence: US)
  Receive Date: 20121204
  Receipt Date: 20130305
  Transmission Date: 20140127
  Serious: No
  Sender: FDA-Public Use
  Company Number: US-AMGEN-USASP2012060948

PATIENT
  Age: 27 Year
  Sex: Male
  Weight: 126.98 kg

DRUGS (7)
  1. ENBREL [Suspect]
     Indication: PSORIASIS
     Dosage: 50 MG, 2 TIMES/WK
     Route: 058
     Dates: start: 20120908, end: 20121224
  2. T/SAL [Concomitant]
     Dosage: UNK UNK, 2 TIMES/WK
  3. DOVONEX [Concomitant]
     Dosage: UNK, WEEKDAYS
  4. CLOBEX                             /00012002/ [Concomitant]
     Dosage: UNK, WEEKEND ONLY
  5. CICLOPIROX [Concomitant]
     Dosage: UNK
  6. STELARA [Concomitant]
     Dosage: UNK
  7. HUMIRA [Concomitant]
     Dosage: UNK

REACTIONS (3)
  - White blood cell count increased [Unknown]
  - Psoriasis [Not Recovered/Not Resolved]
  - Streptococcal infection [Unknown]
